FAERS Safety Report 20715488 (Version 1)
Quarter: 2022Q2

REPORT INFORMATION
  Report Type: Spontaneous
  Country: US (occurrence: US)
  Receive Date: 20220415
  Receipt Date: 20220415
  Transmission Date: 20220720
  Serious: Yes (Other)
  Sender: FDA-Public Use
  Company Number: US-PFIZER INC-202200569037

PATIENT
  Age: 65 Year
  Sex: Male

DRUGS (1)
  1. NIVESTYM [Suspect]
     Active Substance: FILGRASTIM-AAFI
     Dosage: 1080 UG, DAILY (FIVE DAYS)
     Route: 058

REACTIONS (2)
  - Blood stem cell harvest [Unknown]
  - Stem cell transplant [Unknown]
